FAERS Safety Report 20418937 (Version 7)
Quarter: 2024Q2

REPORT INFORMATION
  Report Type: Spontaneous
  Country: IT (occurrence: IT)
  Receive Date: 20220202
  Receipt Date: 20240523
  Transmission Date: 20240716
  Serious: Yes (Other)
  Sender: FDA-Public Use
  Company Number: IT-CELLTRION INC.-2021IT017928

PATIENT

DRUGS (1)
  1. RITUXIMAB [Suspect]
     Active Substance: RITUXIMAB
     Indication: Castleman^s disease
     Dosage: UNK
     Route: 065

REACTIONS (4)
  - Condition aggravated [Recovered/Resolved]
  - Disease recurrence [Unknown]
  - Kaposi^s sarcoma [Unknown]
  - Off label use [Unknown]
